FAERS Safety Report 7501809-8 (Version None)
Quarter: 2011Q2

REPORT INFORMATION
  Report Type: 
  Country: None (occurrence: None)
  Receive Date: 20110525
  Receipt Date: 20110505
  Transmission Date: 20111010
  Serious: Yes (Hospitalization, Other)
  Sender: FDA-Public Use
  Company Number: US-BAYER-2011-007926

PATIENT
  Age: 36 Year
  Sex: Female
  Weight: 81.633 kg

DRUGS (8)
  1. ALBUTEROL SULFATE AUTOHALER [Concomitant]
     Route: 055
  2. CYMBALTA [Concomitant]
     Dosage: 50 MG, QD
     Route: 048
  3. NEXIUM [Concomitant]
     Dosage: 40 MG, QD
     Route: 048
  4. BACLOFEN [Concomitant]
     Dosage: 10 MG, UNK
     Route: 048
  5. ADVAIR DISKUS 100/50 [Concomitant]
     Dosage: UNK UNK, QD
     Route: 055
  6. YAZ [Suspect]
     Indication: ACNE
     Dosage: UNK
     Route: 048
     Dates: start: 20080101, end: 20090101
  7. YAZ [Suspect]
     Indication: CONTRACEPTION
  8. AVONEX [Concomitant]
     Dosage: UNK UNK, OW
     Route: 030

REACTIONS (9)
  - DEEP VEIN THROMBOSIS [None]
  - THROMBOSIS [None]
  - PAIN [None]
  - PAIN IN EXTREMITY [None]
  - VASODILATATION [None]
  - OEDEMA PERIPHERAL [None]
  - SKIN DISCOLOURATION [None]
  - MUSCULAR WEAKNESS [None]
  - INJURY [None]
